FAERS Safety Report 19481523 (Version 2)
Quarter: 2021Q3

REPORT INFORMATION
  Report Type: Report from Study
  Country: US (occurrence: US)
  Receive Date: 20210701
  Receipt Date: 20210706
  Transmission Date: 20211014
  Serious: Yes (Hospitalization)
  Sender: FDA-Public Use
  Company Number: US-INSMED, INC.-2021-08791-US

PATIENT
  Age: 83 Year
  Sex: Female

DRUGS (3)
  1. ETHAMBUTOL [Concomitant]
     Active Substance: ETHAMBUTOL HYDROCHLORIDE
     Indication: PRODUCT USED FOR UNKNOWN INDICATION
     Dosage: UNK
     Route: 065
  2. ARIKAYCE [Suspect]
     Active Substance: AMIKACIN
     Indication: PRODUCT USED FOR UNKNOWN INDICATION
     Dosage: 590 MILLIGRAM, QD
     Route: 055
     Dates: start: 2019
  3. RIFAMPIN. [Suspect]
     Active Substance: RIFAMPIN
     Indication: PRODUCT USED FOR UNKNOWN INDICATION
     Dosage: UNK
     Route: 065

REACTIONS (7)
  - Thyroid hormones increased [Unknown]
  - Sputum discoloured [Not Recovered/Not Resolved]
  - Syncope [Recovered/Resolved]
  - Asthenia [Recovered/Resolved]
  - Productive cough [Not Recovered/Not Resolved]
  - Fatigue [Unknown]
  - Cough [Not Recovered/Not Resolved]

NARRATIVE: CASE EVENT DATE: 20210615
